FAERS Safety Report 6210800-3 (Version None)
Quarter: 2009Q2

REPORT INFORMATION
  Report Type: 
  Country: None (occurrence: None)
  Receive Date: 20090601
  Receipt Date: 20090518
  Transmission Date: 20091009
  Serious: Yes (Death, Hospitalization, Other)
  Sender: FDA-Public Use
  Company Number: NZ-PFIZER INC-2009214941

PATIENT
  Age: 59 Year

DRUGS (9)
  1. DOSTINEX [Suspect]
     Indication: PROLACTINOMA
     Dosage: UNK
  2. HYDROCORTISONE [Concomitant]
     Indication: HYPOPITUITARISM
  3. LEVOTHYROXINE SODIUM [Concomitant]
     Indication: HYPOPITUITARISM
  4. TESTOSTERONE [Concomitant]
     Indication: HYPOPITUITARISM
  5. METFORMIN [Concomitant]
  6. QUINAPRIL [Concomitant]
  7. BENDROFLUAZIDE [Concomitant]
  8. BEZAFIBRATE [Concomitant]
  9. ALLOPURINOL [Concomitant]

REACTIONS (4)
  - CARDIAC VALVE DISEASE [None]
  - ISCHAEMIC STROKE [None]
  - LARGE INTESTINAL OBSTRUCTION [None]
  - LEFT VENTRICULAR FAILURE [None]
